FAERS Safety Report 19089019 (Version 3)
Quarter: 2021Q4

REPORT INFORMATION
  Report Type: Report from Study
  Country: KE (occurrence: KE)
  Receive Date: 20210403
  Receipt Date: 20211229
  Transmission Date: 20220303
  Serious: Yes (Hospitalization, Other)
  Sender: FDA-Public Use
  Company Number: KE-CIPLA LTD.-2021KE02442

PATIENT

DRUGS (4)
  1. LOPINAVIR\RITONAVIR [Suspect]
     Active Substance: LOPINAVIR\RITONAVIR
     Indication: HIV infection
     Dosage: 3 DOSAGE FORM, BID (120 MG/30 MG TWICE DAILY)
     Route: 048
     Dates: start: 20160314, end: 20160613
  2. ABACAVIR\LAMIVUDINE [Suspect]
     Active Substance: ABACAVIR\LAMIVUDINE
     Indication: HIV infection
     Dosage: 1.5 DOSAGE FORM, BID (90 MG/45MG, BID)
     Route: 048
     Dates: start: 20160314, end: 20160613
  3. CEFUROXIME [Concomitant]
     Active Substance: CEFUROXIME
     Indication: Otitis media
     Dosage: 125 MILLIGRAM, BID
     Route: 065
     Dates: start: 20160328
  4. AMOXICILLIN\CLAVULANIC ACID [Concomitant]
     Active Substance: AMOXICILLIN\CLAVULANIC ACID
     Indication: Pneumonia
     Dosage: 228 MILLIGRAM, BID
     Route: 065
     Dates: start: 20160314

REACTIONS (3)
  - Meningitis [None]
  - Lower respiratory tract infection [Recovered/Resolved]
  - Otitis media [Recovered/Resolved]

NARRATIVE: CASE EVENT DATE: 20160326
